FAERS Safety Report 7981683-6 (Version None)
Quarter: 2011Q4

REPORT INFORMATION
  Report Type: 
  Country: None (occurrence: None)
  Receive Date: 20111215
  Receipt Date: 20111208
  Transmission Date: 20120403
  Serious: No
  Sender: FDA-Public Use
  Company Number: US-BAYER-2011-118420

PATIENT
  Age: 34 Year
  Sex: Female

DRUGS (1)
  1. BETASERON [Suspect]
     Dosage: 0.25 ML, QOD
     Route: 058
     Dates: start: 20111115, end: 20111205

REACTIONS (3)
  - SWOLLEN TONGUE [None]
  - VIITH NERVE PARALYSIS [None]
  - ANXIETY [None]
